FAERS Safety Report 7955275-9 (Version None)
Quarter: 2011Q4

REPORT INFORMATION
  Report Type: 
  Country: None (occurrence: None)
  Receive Date: 20111202
  Receipt Date: 20111125
  Transmission Date: 20120403
  Serious: Yes (Death, Hospitalization, Disabling, Other)
  Sender: FDA-Public Use
  Company Number: FR-CEPHALON-2011003824

PATIENT
  Sex: Female
  Weight: 54 kg

DRUGS (4)
  1. BENDAMUSTINE HCL [Suspect]
     Indication: NON-HODGKIN'S LYMPHOMA
     Route: 042
     Dates: start: 20101001
  2. BENDAMUSTINE HCL [Suspect]
     Route: 042
     Dates: start: 20110401
  3. BENDAMUSTINE HCL [Suspect]
     Route: 042
     Dates: start: 20110603
  4. INNOHEP [Concomitant]
     Dates: start: 20110601

REACTIONS (4)
  - DEATH [None]
  - THROMBOCYTOPENIA [None]
  - TOXIC SKIN ERUPTION [None]
  - INFECTION [None]
